FAERS Safety Report 17315828 (Version 15)
Quarter: 2021Q4

REPORT INFORMATION
  Report Type: Spontaneous
  Country: US (occurrence: US)
  Receive Date: 20200124
  Receipt Date: 20211213
  Transmission Date: 20220303
  Serious: Yes (Hospitalization, Other)
  Sender: FDA-Public Use
  Company Number: US-PFIZER INC-2020031178

PATIENT
  Age: 65 Year
  Sex: Female
  Weight: 64 kg

DRUGS (10)
  1. LYRICA [Suspect]
     Active Substance: PREGABALIN
     Indication: Multiple sclerosis
     Dosage: 100 MG
     Route: 048
  2. LYRICA [Suspect]
     Active Substance: PREGABALIN
     Indication: Headache
     Dosage: 200 MG
     Route: 048
  3. LYRICA [Suspect]
     Active Substance: PREGABALIN
     Indication: Neuralgia
     Dosage: 300 MG
     Route: 048
  4. LYRICA [Suspect]
     Active Substance: PREGABALIN
     Indication: Neuropathy peripheral
     Dosage: 300 MG, TWICE A DAY (IN THE MORNING AND AT NIGHT)
     Route: 048
     Dates: start: 2012, end: 20201110
  5. LYRICA [Suspect]
     Active Substance: PREGABALIN
     Indication: Urticaria
     Dosage: UNK, TWICE A DAY (300 WITH WATER WHEN GETS UP AND GOES TO BED)
  6. LYRICA [Suspect]
     Active Substance: PREGABALIN
     Indication: Hypoaesthesia
     Dosage: 300 MG, TWICE A DAY
     Route: 048
  7. LYRICA [Suspect]
     Active Substance: PREGABALIN
     Indication: Paraesthesia
     Dosage: 300 MG, TWICE A DAY
     Route: 048
  8. LYRICA [Suspect]
     Active Substance: PREGABALIN
     Indication: Restless legs syndrome
  9. REBAMIPIDE [Concomitant]
     Active Substance: REBAMIPIDE
     Indication: Multiple sclerosis
     Dosage: UNK
  10. MAVENCLAD [Concomitant]
     Active Substance: CLADRIBINE
     Dosage: UNK

REACTIONS (16)
  - Urticaria [Not Recovered/Not Resolved]
  - Symptom recurrence [Not Recovered/Not Resolved]
  - Pancreatitis [Unknown]
  - Drug ineffective [Unknown]
  - Withdrawal syndrome [Unknown]
  - Pancreatic disorder [Unknown]
  - Dizziness [Unknown]
  - Agitation [Unknown]
  - Anxiety [Unknown]
  - Illness [Unknown]
  - Memory impairment [Unknown]
  - Speech disorder [Unknown]
  - Insomnia [Unknown]
  - Fatigue [Unknown]
  - Body height decreased [Unknown]
  - Formication [Unknown]

NARRATIVE: CASE EVENT DATE: 20200424
